FAERS Safety Report 4407335-7 (Version None)
Quarter: 2004Q3

REPORT INFORMATION
  Report Type: 
  Country: None (occurrence: None)
  Receive Date: 20040721
  Receipt Date: 20040714
  Transmission Date: 20050211
  Serious: Yes (Death)
  Sender: FDA-Public Use
  Company Number: 163-20785-04060013 (0)

PATIENT
  Age: 39 Year
  Sex: Female

DRUGS (1)
  1. THALOMID [Suspect]
     Indication: COLON CANCER
     Dosage: 100 MG, DAILY, ORAL
     Route: 048
     Dates: start: 20040211, end: 20040311

REACTIONS (3)
  - COLORECTAL CANCER METASTATIC [None]
  - HEPATIC FAILURE [None]
  - ORGAN FAILURE [None]
